FAERS Safety Report 13098346 (Version 2)
Quarter: 2017Q1

REPORT INFORMATION
  Report Type: Report from Study
  Country: US (occurrence: US)
  Receive Date: 20170109
  Receipt Date: 20170310
  Transmission Date: 20170428
  Serious: Yes (Death, Other)
  Sender: FDA-Public Use
  Company Number: US-GILEAD-2017-0252068

PATIENT
  Age: 71 Year
  Sex: Female

DRUGS (3)
  1. AMBRISENTAN [Suspect]
     Active Substance: AMBRISENTAN
     Indication: PULMONARY VALVE STENOSIS
  2. AMBRISENTAN [Suspect]
     Active Substance: AMBRISENTAN
     Indication: PULMONARY HYPERTENSION
     Dosage: 5 MG, QD
     Route: 065
     Dates: start: 20161208
  3. AMBRISENTAN [Suspect]
     Active Substance: AMBRISENTAN
     Indication: SLEEP APNOEA SYNDROME

REACTIONS (4)
  - Blood gases abnormal [Unknown]
  - Heart rate decreased [Unknown]
  - Blood potassium increased [Unknown]
  - Renal failure [Fatal]

NARRATIVE: CASE EVENT DATE: 20161229
